FAERS Safety Report 18305919 (Version 1)
Quarter: 2020Q3

REPORT INFORMATION
  Report Type: Spontaneous
  Country: IT (occurrence: IT)
  Receive Date: 20200924
  Receipt Date: 20200924
  Transmission Date: 20201103
  Serious: Yes (Other)
  Sender: FDA-Public Use
  Company Number: IT-ACCORD-202420

PATIENT
  Age: 59 Year
  Sex: Female

DRUGS (7)
  1. DIBASE [Concomitant]
     Active Substance: CHOLECALCIFEROL
  2. METHOTREXATE. [Suspect]
     Active Substance: METHOTREXATE
     Indication: SPONDYLITIS
     Route: 030
     Dates: start: 20140819, end: 20200908
  3. FOLINA [Concomitant]
  4. METHOTREXATE. [Suspect]
     Active Substance: METHOTREXATE
     Indication: SPONDYLITIS
     Route: 030
     Dates: start: 20140819, end: 20200325
  5. HUMIRA [Suspect]
     Active Substance: ADALIMUMAB
     Indication: SPONDYLITIS
     Dosage: STRENGTH?80 MG
     Route: 058
     Dates: start: 20140418, end: 20200325
  6. ALGIX [Concomitant]
     Active Substance: ETORICOXIB
  7. PREGABALIN. [Concomitant]
     Active Substance: PREGABALIN

REACTIONS (6)
  - Malaise [Recovered/Resolved]
  - COVID-19 [Recovered/Resolved]
  - Aphthous ulcer [Recovering/Resolving]
  - Alopecia [Recovering/Resolving]
  - Pyrexia [Recovered/Resolved]
  - Asthenia [Recovered/Resolved]

NARRATIVE: CASE EVENT DATE: 20200325
